FAERS Safety Report 5361199-6 (Version None)
Quarter: 2007Q2

REPORT INFORMATION
  Report Type: 
  Country: None (occurrence: None)
  Receive Date: 20070614
  Receipt Date: 20070604
  Transmission Date: 20071010
  Serious: Yes (Hospitalization, Other)
  Sender: FDA-Public Use
  Company Number: L07-KOR-02448-01

PATIENT
  Age: 59 Year
  Sex: Female

DRUGS (4)
  1. CARBAMAZEPINE [Suspect]
     Indication: NECK PAIN
  2. GABAPENTIN [Concomitant]
  3. MELOXICAM [Concomitant]
  4. CIMETIDINE HCL [Concomitant]

REACTIONS (6)
  - DISEASE RECURRENCE [None]
  - DRUG RASH WITH EOSINOPHILIA AND SYSTEMIC SYMPTOMS [None]
  - EPSTEIN-BARR VIRUS INFECTION [None]
  - GALLBLADDER DISORDER [None]
  - HEPATITIS [None]
  - HUMAN HERPES VIRUS 6 SEROLOGY POSITIVE [None]
